FAERS Safety Report 20921066 (Version 2)
Quarter: 2022Q3

REPORT INFORMATION
  Report Type: Report from Study
  Country: US (occurrence: US)
  Receive Date: 20220606
  Receipt Date: 20220705
  Transmission Date: 20221026
  Serious: Yes (Death, Life-Threatening, Hospitalization, Other)
  Sender: FDA-Public Use
  Company Number: US-GILEAD-2022-0583681

PATIENT
  Age: 77 Year
  Sex: Female
  Weight: 77.1 kg

DRUGS (50)
  1. REMDESIVIR [Suspect]
     Active Substance: REMDESIVIR
     Indication: COVID-19
     Dosage: 100 MG, QD (5 MILLIGRAM PER MILLILITRE)
     Route: 042
     Dates: start: 20210301, end: 20210304
  2. REMDESIVIR [Suspect]
     Active Substance: REMDESIVIR
     Dosage: UNK, 5 MILLIGRAM PER MILLILITRE
     Route: 042
     Dates: start: 20210228, end: 20210304
  3. PULMOZYME [Suspect]
     Active Substance: DORNASE ALFA
     Indication: COVID-19
     Dosage: 2.5 MG, BID
     Route: 055
     Dates: start: 20210301, end: 20210315
  4. METHYLPREDNISOLONE [Concomitant]
     Active Substance: METHYLPREDNISOLONE
     Indication: Chronic obstructive pulmonary disease
     Dosage: {8 MG
     Dates: start: 20180807, end: 20210317
  5. METHYLPREDNISOLONE [Concomitant]
     Active Substance: METHYLPREDNISOLONE
     Indication: COVID-19
     Dosage: 40 MG, Q8H
     Route: 042
  6. METHYLPREDNISOLONE [Concomitant]
     Active Substance: METHYLPREDNISOLONE
     Dosage: UNK
     Dates: start: 20210502
  7. METHYLPREDNISOLONE [Concomitant]
     Active Substance: METHYLPREDNISOLONE
     Dosage: UNK
     Dates: start: 20210302, end: 20210317
  8. OXYGEN [Concomitant]
     Active Substance: OXYGEN
     Dosage: HIGH FLOW 85% INITIALLY WHICH SLOWLY INCREASED
     Dates: start: 20210221
  9. OXYGEN [Concomitant]
     Active Substance: OXYGEN
     Dosage: UNK, BILEVEL POSITIVE AIRWAY PRESSURE (BIPAP)
  10. ACETAMINOPHEN [Concomitant]
     Active Substance: ACETAMINOPHEN
     Indication: Pain
     Dosage: UNK, Q6H
     Route: 050
  11. ACETAMINOPHEN [Concomitant]
     Active Substance: ACETAMINOPHEN
     Indication: Pyrexia
  12. ACETAMINOPHEN [Concomitant]
     Active Substance: ACETAMINOPHEN
     Indication: Headache
  13. ACETYLCYSTEINE [Concomitant]
     Active Substance: ACETYLCYSTEINE
     Dosage: 4 ML, Q4HR
  14. ARFORMOTEROL [Concomitant]
     Active Substance: ARFORMOTEROL
     Dosage: 15 ML, BID
     Route: 055
  15. VITAMIN C [Concomitant]
     Active Substance: ASCORBIC ACID
     Dosage: 500 MG
     Route: 050
  16. ASPIRIN [Concomitant]
     Active Substance: ASPIRIN
     Dosage: 81 MG
  17. AZITHROMYCIN [Concomitant]
     Active Substance: AZITHROMYCIN
     Indication: Infection
     Dosage: 500 MG, QD
     Route: 048
  18. BUDESONIDE [Concomitant]
     Active Substance: BUDESONIDE
     Dosage: 0.25 MG, BID
     Route: 055
  19. CEFTRIAXONE [Concomitant]
     Active Substance: CEFTRIAXONE
     Dosage: 1 G, QD
  20. CHOLECALCIFEROL [Concomitant]
     Active Substance: CHOLECALCIFEROL
     Dosage: 1000 U
  21. DEXAMETHASONE [Concomitant]
     Active Substance: DEXAMETHASONE
     Dosage: 4 MG, Q8H
     Route: 042
  22. DILTIAZEM [Concomitant]
     Active Substance: DILTIAZEM
     Dosage: 30 MG, TID
     Route: 048
  23. DOCUSATE SODIUM [Concomitant]
     Active Substance: DOCUSATE SODIUM
     Dosage: 100 MG, BID
  24. ENOXAPARIN [Concomitant]
     Active Substance: ENOXAPARIN
     Dosage: 40 MG Q12 HR
     Route: 058
  25. EPHEDRINE [Concomitant]
     Active Substance: EPHEDRINE
     Dosage: 50 MG
     Route: 042
  26. EPHEDRINE [Concomitant]
     Active Substance: EPHEDRINE
     Dosage: 7.5 MG CONTINOUS DRIP
     Route: 042
  27. ETOMIDATE [Concomitant]
     Active Substance: ETOMIDATE
     Dosage: 2 MG
     Route: 042
  28. FAMOTIDINE [Concomitant]
     Active Substance: FAMOTIDINE
     Dosage: 20 MG, BID
     Route: 042
  29. FENTANYL [Concomitant]
     Active Substance: FENTANYL
     Dosage: 50 UG
     Route: 042
  30. FLUCONAZOLE [Concomitant]
     Active Substance: FLUCONAZOLE
     Dosage: 100 MG, QD
  31. GUAIFENESIN + CODEINE [Concomitant]
     Indication: Cough
     Dosage: 10 ML, Q4HR
  32. HYDRALAZINE [Concomitant]
     Active Substance: HYDRALAZINE HYDROCHLORIDE
     Dosage: 25 MG
  33. HYDROCODONE [Concomitant]
     Active Substance: HYDROCODONE
  34. IPRATROPIUM [Concomitant]
     Active Substance: IPRATROPIUM
     Dosage: 3 ML
     Route: 055
  35. LEVOTHYROXINE [Concomitant]
     Active Substance: LEVOTHYROXINE
     Dosage: 50 UG
  36. LIDOCAINE [Concomitant]
     Active Substance: LIDOCAINE
     Dosage: 1 PATCH
     Route: 062
  37. MAGNESIUM HYDROXIDE [Concomitant]
     Active Substance: MAGNESIUM HYDROXIDE
     Dosage: 10 ML, BID
  38. MELATONIN [Concomitant]
     Active Substance: MELATONIN
     Dosage: 3 MG
  39. MIDAZOLAM [Concomitant]
     Active Substance: MIDAZOLAM
     Dosage: 1 MG
  40. SODIUM CHLORIDE [Concomitant]
     Active Substance: SODIUM CHLORIDE
     Dosage: 75 ML
     Route: 042
  41. NYSTATIN [Concomitant]
     Active Substance: NYSTATIN
     Dosage: 5 ML, QID
     Route: 048
  42. PANTOPRAZOLE [Concomitant]
     Active Substance: PANTOPRAZOLE
     Dosage: 40 MG, QD
     Route: 042
  43. PHENYLEPHRINE [Concomitant]
     Active Substance: PHENYLEPHRINE HYDROCHLORIDE
     Indication: Septic shock
     Dosage: 100 UG
     Route: 042
  44. PHENYLEPHRINE [Concomitant]
     Active Substance: PHENYLEPHRINE HYDROCHLORIDE
     Dosage: UNK
     Dates: start: 20210317, end: 20210317
  45. KCL [Concomitant]
     Active Substance: POTASSIUM CHLORIDE
     Dosage: 20 MEQ
  46. ROCURONIUM [Concomitant]
     Active Substance: ROCURONIUM BROMIDE
     Dosage: 90 MG
     Route: 042
  47. SENNOSIDES [Concomitant]
     Active Substance: SENNOSIDES
     Dosage: 17.2 MG, BID
  48. SIMVASTATIN [Concomitant]
     Active Substance: SIMVASTATIN
     Dosage: 20 MG, QD
  49. TIOTROPIUM [Concomitant]
     Active Substance: TIOTROPIUM
     Dosage: UNK, QD
     Route: 055
  50. TRAMADOL [Concomitant]
     Active Substance: TRAMADOL
     Dosage: 50 MG, Q4HR

REACTIONS (2)
  - Respiratory failure [Fatal]
  - Dysphagia [Recovered/Resolved]

NARRATIVE: CASE EVENT DATE: 20210305
